FAERS Safety Report 5608390-9 (Version None)
Quarter: 2008Q1

REPORT INFORMATION
  Report Type: 
  Country: None (occurrence: None)
  Receive Date: 20080125
  Receipt Date: 20080111
  Transmission Date: 20080703
  Serious: Yes (Death, Hospitalization)
  Sender: FDA-Public Use
  Company Number: 2007P1000549

PATIENT
  Age: 5 Year
  Weight: 16 kg

DRUGS (4)
  1. BUSULFAN (BUSULFAN) [Suspect]
     Indication: STEM CELL TRANSPLANT
     Dosage: 8.4 ML;X1;IV; 11.2 ML;X1;IV; 2.8 ML;X1;IV
     Route: 042
     Dates: start: 20070619, end: 20070619
  2. BUSULFAN (BUSULFAN) [Suspect]
     Indication: STEM CELL TRANSPLANT
     Dosage: 8.4 ML;X1;IV; 11.2 ML;X1;IV; 2.8 ML;X1;IV
     Route: 042
     Dates: start: 20070620, end: 20070622
  3. BUSULFAN (BUSULFAN) [Suspect]
     Indication: STEM CELL TRANSPLANT
     Dosage: 8.4 ML;X1;IV; 11.2 ML;X1;IV; 2.8 ML;X1;IV
     Route: 042
     Dates: start: 20070623, end: 20070623
  4. CLONAZEPAM [Concomitant]

REACTIONS (14)
  - COAGULOPATHY [None]
  - DIARRHOEA [None]
  - DISSEMINATED INTRAVASCULAR COAGULATION [None]
  - FEBRILE NEUTROPENIA [None]
  - HYPERCHLORAEMIA [None]
  - HYPERNATRAEMIA [None]
  - HYPOKALAEMIA [None]
  - MULTI-ORGAN FAILURE [None]
  - REFRACTORINESS TO PLATELET TRANSFUSION [None]
  - RENAL IMPAIRMENT [None]
  - SHOCK [None]
  - STOMATITIS [None]
  - UPPER GASTROINTESTINAL HAEMORRHAGE [None]
  - VENOOCCLUSIVE LIVER DISEASE [None]
